FAERS Safety Report 16859678 (Version 1)
Quarter: 2019Q4

REPORT INFORMATION
  Report Type: Spontaneous
  Country: US (occurrence: US)
  Receive Date: 20190926
  Receipt Date: 20190926
  Transmission Date: 20200122
  Serious: Yes (Hospitalization)
  Sender: FDA-Public Use
  Company Number: None

PATIENT
  Sex: Male

DRUGS (12)
  1. EZETIMIBE. [Concomitant]
     Active Substance: EZETIMIBE
  2. DUTASTERIDE. [Concomitant]
     Active Substance: DUTASTERIDE
  3. METFORMIN [Concomitant]
     Active Substance: METFORMIN HYDROCHLORIDE
  4. CLOPIDOGREL [Concomitant]
     Active Substance: CLOPIDOGREL BISULFATE
  5. REPATHA [Suspect]
     Active Substance: EVOLOCUMAB
     Indication: ESSENTIAL HYPERTENSION
     Dosage: ?          OTHER FREQUENCY:QOW;?
     Route: 058
     Dates: start: 20190301
  6. ALPRAZOLAM. [Concomitant]
     Active Substance: ALPRAZOLAM
  7. CARVEDILOL. [Concomitant]
     Active Substance: CARVEDILOL
  8. JANUVIA [Concomitant]
     Active Substance: SITAGLIPTIN PHOSPHATE
  9. AMLODIPINE [Concomitant]
     Active Substance: AMLODIPINE BESYLATE
  10. DULOXETINE. [Concomitant]
     Active Substance: DULOXETINE
  11. TAMSULOSIN [Concomitant]
     Active Substance: TAMSULOSIN
  12. LOSARTAN. [Concomitant]
     Active Substance: LOSARTAN

REACTIONS (2)
  - Therapy cessation [None]
  - Femur fracture [None]
